FAERS Safety Report 8200682-2 (Version None)
Quarter: 2012Q1

REPORT INFORMATION
  Report Type: 
  Country: None (occurrence: None)
  Receive Date: 20120312
  Receipt Date: 20120302
  Transmission Date: 20120608
  Serious: Yes (Other)
  Sender: FDA-Public Use
  Company Number: US-ASTELLAS-2012US002468

PATIENT
  Sex: Female

DRUGS (2)
  1. NAPROXEN [Concomitant]
     Indication: ARTHRALGIA
     Dosage: UNK
     Route: 065
  2. TARCEVA [Suspect]
     Indication: LUNG CANCER METASTATIC
     Dosage: 100 MG, UNKNOWN/D
     Route: 048
     Dates: start: 20111101

REACTIONS (9)
  - JOINT SWELLING [None]
  - LOWER LIMB FRACTURE [None]
  - BONE NEOPLASM MALIGNANT [None]
  - LUNG OPERATION [None]
  - RASH PRURITIC [None]
  - SKIN DISCOLOURATION [None]
  - RASH ERYTHEMATOUS [None]
  - RASH MACULAR [None]
  - INCORRECT DOSE ADMINISTERED [None]
